FAERS Safety Report 5679655-X (Version None)
Quarter: 2008Q1

REPORT INFORMATION
  Report Type: 
  Country: None (occurrence: None)
  Receive Date: 20080325
  Receipt Date: 20080318
  Transmission Date: 20080703
  Serious: Yes (Hospitalization)
  Sender: FDA-Public Use
  Company Number: FR-ALLERGAN-0803278US

PATIENT
  Sex: Female

DRUGS (1)
  1. BOTOX 100 UNITS [Suspect]
     Indication: BLEPHAROSPASM
     Route: 030

REACTIONS (3)
  - MYALGIA [None]
  - MYOSITIS [None]
  - PYREXIA [None]
